FAERS Safety Report 15515799 (Version 1)
Quarter: 2018Q4

REPORT INFORMATION
  Report Type: Spontaneous
  Country: IT (occurrence: IT)
  Receive Date: 20181017
  Receipt Date: 20181017
  Transmission Date: 20190205
  Serious: Yes (Death, Hospitalization, Other)
  Sender: FDA-Public Use
  Company Number: IT-AUROBINDO-AUR-APL-2018-050696

PATIENT
  Age: 21 Year
  Sex: Female

DRUGS (1)
  1. PARACETAMOL TABLET [Suspect]
     Active Substance: ACETAMINOPHEN
     Indication: PRODUCT USED FOR UNKNOWN INDICATION
     Dosage: UNK
     Route: 048
     Dates: start: 20180924, end: 20180925

REACTIONS (4)
  - Circulatory collapse [Fatal]
  - Toxicity to various agents [Fatal]
  - Hepatic function abnormal [Fatal]
  - Intentional overdose [Fatal]
